FAERS Safety Report 19296357 (Version 1)
Quarter: 2021Q2

REPORT INFORMATION
  Report Type: Spontaneous
  Country: US (occurrence: US)
  Receive Date: 20210524
  Receipt Date: 20210524
  Transmission Date: 20210717
  Serious: No
  Sender: FDA-Public Use
  Company Number: US-CADILA HEALTHCARE LIMITED-US-ZYDUS-064186

PATIENT

DRUGS (2)
  1. VACCINES [Suspect]
     Active Substance: UNSPECIFIED INGREDIENT
     Indication: COVID-19 PROPHYLAXIS
     Dosage: UNK
     Dates: start: 20210329
  2. BOSENTAN 125 MG TABLETS [Suspect]
     Active Substance: BOSENTAN
     Indication: PULMONARY ARTERIAL HYPERTENSION
     Dosage: 125 MILLIGRAM, BID
     Route: 048

REACTIONS (1)
  - Administration site pain [Not Recovered/Not Resolved]

NARRATIVE: CASE EVENT DATE: 20210329
